FAERS Safety Report 21188868 (Version 1)
Quarter: 2022Q3

REPORT INFORMATION
  Report Type: Spontaneous
  Country: US (occurrence: US)
  Receive Date: 20220809
  Receipt Date: 20220809
  Transmission Date: 20221027
  Serious: Yes (Other)
  Sender: FDA-Public Use
  Company Number: US-AUROBINDO-AUR-APL-2022-030764

PATIENT
  Age: 42 Year
  Sex: Male

DRUGS (1)
  1. BACLOFEN [Suspect]
     Active Substance: BACLOFEN
     Indication: Spinal cord injury
     Dosage: 40 MILLIGRAM, 3 TIMES A DAY
     Route: 048

REACTIONS (1)
  - Central sleep apnoea syndrome [Unknown]
